FAERS Safety Report 16535860 (Version 1)
Quarter: 2019Q3

REPORT INFORMATION
  Report Type: Spontaneous
  Country: GB (occurrence: GB)
  Receive Date: 20190705
  Receipt Date: 20190705
  Transmission Date: 20191004
  Serious: Yes (Death, Life-Threatening, Hospitalization, Other)
  Sender: FDA-Public Use
  Company Number: GB-ACCORD-137178

PATIENT
  Age: 81 Year
  Sex: Female
  Weight: 45 kg

DRUGS (12)
  1. CLOPIDOGREL [Suspect]
     Active Substance: CLOPIDOGREL BISULFATE
     Indication: TRANSIENT ISCHAEMIC ATTACK
     Dosage: 14 DAY COURSE
     Route: 048
     Dates: end: 20190525
  2. APIXABAN [Suspect]
     Active Substance: APIXABAN
     Indication: TRANSIENT ISCHAEMIC ATTACK
     Route: 048
     Dates: end: 20190524
  3. ZOPICLONE [Concomitant]
     Active Substance: ZOPICLONE
  4. ADCAL-D3 [Concomitant]
     Active Substance: CALCIUM CARBONATE\CHOLECALCIFEROL
     Dosage: TT DAILY
  5. DIGOXIN. [Concomitant]
     Active Substance: DIGOXIN
  6. PARACETAMOL [Concomitant]
     Active Substance: ACETAMINOPHEN
  7. BRALTUS [Concomitant]
     Active Substance: TIOTROPIUM BROMIDE
  8. CARVEDILOL/CARVEDILOL HYDROCHLODRIDE [Concomitant]
  9. DUORESP SPIROMAX [Concomitant]
     Active Substance: BUDESONIDE\FORMOTEROL
     Dosage: 320/9
  10. ALENDRONATE SODIUM/ALENDRONIC ACID [Concomitant]
  11. ATORVASTATIN [Concomitant]
     Active Substance: ATORVASTATIN
  12. OMEPRAZOLE. [Concomitant]
     Active Substance: OMEPRAZOLE

REACTIONS (1)
  - Haemorrhage intracranial [Fatal]

NARRATIVE: CASE EVENT DATE: 20190610
